FAERS Safety Report 5586572-2 (Version None)
Quarter: 2008Q1

REPORT INFORMATION
  Report Type: 
  Country: None (occurrence: None)
  Receive Date: 20080110
  Receipt Date: 20070919
  Transmission Date: 20080703
  Serious: No
  Sender: FDA-Public Use
  Company Number: US-BAYER-US-2007-035448

PATIENT
  Age: 30 Year
  Sex: Female
  Weight: 74 kg

DRUGS (1)
  1. YAZ [Suspect]
     Indication: CONTRACEPTION
     Route: 048
     Dates: start: 20070401

REACTIONS (3)
  - BLOOD FOLLICLE STIMULATING HORMONE INCREASED [None]
  - BLOOD LUTEINISING HORMONE INCREASED [None]
  - SINUSITIS [None]
